FAERS Safety Report 4767820-5 (Version None)
Quarter: 2005Q3

REPORT INFORMATION
  Report Type: 
  Country: None (occurrence: None)
  Receive Date: 20050912
  Receipt Date: 20050830
  Transmission Date: 20060218
  Serious: Yes (Other)
  Sender: FDA-Public Use
  Company Number: 216704

PATIENT
  Age: 60 Year
  Sex: Female

DRUGS (10)
  1. RITUXIMAB OR PLACEBO (RITUXIMAB OR PLACEBO) CONC FOR SOLUTION FOR INFU [Suspect]
     Indication: RHEUMATOID ARTHRITIS
     Dosage: 1000 MG, DAYS, 1+15, INTRAVENOUS
     Route: 042
     Dates: start: 20031229, end: 20031229
  2. METHYLPREDNISOLONE [Suspect]
     Indication: RHEUMATOID ARTHRITIS
     Dosage: 100 MG, INTRAVENOUS
     Route: 042
     Dates: start: 20031229
  3. ACETAMINOPHEN [Concomitant]
  4. DIPHENHYDRAMINE HCL [Concomitant]
  5. PREDNISONE [Concomitant]
  6. CALCIUM (CALCIUM) [Concomitant]
  7. MULTI-VITAMINS [Concomitant]
  8. VITAMIN E [Concomitant]
  9. FOLIC ACID [Concomitant]
  10. METHOTREXATE [Concomitant]

REACTIONS (43)
  - ABDOMINAL PAIN [None]
  - ARRHYTHMIA [None]
  - ARTHRALGIA [None]
  - ASTHENIA [None]
  - BACK PAIN [None]
  - BLOOD PRESSURE DIASTOLIC DECREASED [None]
  - CARDIO-RESPIRATORY ARREST [None]
  - CHILLS [None]
  - CONVULSION [None]
  - DEVICE FAILURE [None]
  - DISEASE RECURRENCE [None]
  - EXTRAVASATION [None]
  - FAECAL INCONTINENCE [None]
  - FLUSHING [None]
  - HAEMORRHAGE [None]
  - HEADACHE [None]
  - HYPERSENSITIVITY [None]
  - HYPERTENSION [None]
  - HYPOTENSION [None]
  - HYPOTONIA [None]
  - INFUSION RELATED REACTION [None]
  - ISCHAEMIC STROKE [None]
  - LEUKOENCEPHALOPATHY [None]
  - MENINGITIS [None]
  - METASTASES TO CENTRAL NERVOUS SYSTEM [None]
  - NAUSEA [None]
  - NON-HODGKIN'S LYMPHOMA [None]
  - OEDEMA PERIPHERAL [None]
  - PACEMAKER COMPLICATION [None]
  - PARAESTHESIA [None]
  - PHARYNGEAL OEDEMA [None]
  - PYREXIA [None]
  - RASH [None]
  - RENAL FAILURE [None]
  - SHOCK [None]
  - SIMPLE PARTIAL SEIZURES [None]
  - SWOLLEN TONGUE [None]
  - SYNCOPE [None]
  - SYNCOPE VASOVAGAL [None]
  - SYSTEMIC LUPUS ERYTHEMATOSUS [None]
  - URTICARIA [None]
  - VISION BLURRED [None]
  - WHITE BLOOD CELL COUNT INCREASED [None]
